FAERS Safety Report 20235822 (Version 1)
Quarter: 2021Q4

REPORT INFORMATION
  Report Type: Spontaneous
  Country: US (occurrence: US)
  Receive Date: 20211228
  Receipt Date: 20211228
  Transmission Date: 20220304
  Serious: Yes (Other)
  Sender: FDA-Public Use
  Company Number: US-AMGEN-USASP2021204469

PATIENT
  Sex: Female

DRUGS (11)
  1. OTEZLA [Suspect]
     Active Substance: APREMILAST
     Indication: Psoriatic arthropathy
     Dosage: 30 MILLIGRAM, BID
     Route: 048
     Dates: start: 20210615
  2. CITALOPRAM [Concomitant]
     Active Substance: CITALOPRAM HYDROBROMIDE
     Dosage: 20 MILLIGRAM
  3. DILTIAZEM [Concomitant]
     Active Substance: DILTIAZEM
     Dosage: 120 MILLIGRAM
  4. EZETIMIBE [Concomitant]
     Active Substance: EZETIMIBE
     Dosage: 10 MILLIGRAM
  5. GABAPENTIN [Concomitant]
     Active Substance: GABAPENTIN
     Dosage: 300 MILLIGRAM
  6. LOSARTAN POTASSIUM [Concomitant]
     Active Substance: LOSARTAN POTASSIUM
     Dosage: 25 MILLIGRAM
  7. NARCAN [Concomitant]
     Active Substance: NALOXONE HYDROCHLORIDE
  8. OXYCODONE/APAP [Concomitant]
     Active Substance: ACETAMINOPHEN\OXYCODONE HYDROCHLORIDE
     Dosage: 7.5-325
  9. PENTOXIFYLLINE [Concomitant]
     Active Substance: PENTOXIFYLLINE
     Dosage: 400 MILLIGRAM
  10. SCOPOLAMINE N-OXIDE [Concomitant]
     Active Substance: SCOPOLAMINE N-OXIDE
     Dosage: 1 MILLIGRAM, THREE DAY
  11. TAMOXIFEN [Concomitant]
     Active Substance: TAMOXIFEN
     Dosage: 20 MILLIGRAM

REACTIONS (2)
  - Psoriatic arthropathy [Not Recovered/Not Resolved]
  - Product administration interrupted [Unknown]

NARRATIVE: CASE EVENT DATE: 20210101
